FAERS Safety Report 9060375 (Version 1)
Quarter: 2013Q1

REPORT INFORMATION
  Report Type: Spontaneous
  Country: GB (occurrence: GB)
  Receive Date: 20130212
  Receipt Date: 20130212
  Transmission Date: 20140127
  Serious: Yes (Hospitalization, Other)
  Sender: FDA-Public Use
  Company Number: GB-TEVA-384711ISR

PATIENT
  Age: 53 Year
  Sex: Female

DRUGS (2)
  1. NITROFURANTOIN [Suspect]
     Indication: PROPHYLAXIS URINARY TRACT INFECTION
     Route: 048
     Dates: start: 201108
  2. METHOTREXATE [Concomitant]
     Dosage: ON LONG TERM METHOTREXATE.

REACTIONS (3)
  - Treatment failure [Unknown]
  - Urosepsis [Unknown]
  - Drug prescribing error [Unknown]
